FAERS Safety Report 11270991 (Version 1)
Quarter: 2015Q3

REPORT INFORMATION
  Report Type: Other
  Country: IT (occurrence: IT)
  Receive Date: 20150714
  Receipt Date: 20150714
  Transmission Date: 20151125
  Serious: Yes (Hospitalization)
  Sender: FDA-Public Use
  Company Number: IT-MYLANLABS-2015M1022638

PATIENT

DRUGS (2)
  1. ZOPRANOL [Suspect]
     Active Substance: ZOFENOPRIL
     Indication: HYPERTENSION
     Dosage: 7.5 MG, QD
     Route: 048
     Dates: start: 20150101, end: 20150420
  2. BISOPROLOL FUMARATE. [Suspect]
     Active Substance: BISOPROLOL FUMARATE
     Indication: HYPERTENSION
     Dosage: 2.5 MG, QD
     Route: 048
     Dates: start: 20150101

REACTIONS (2)
  - Hypertensive crisis [Recovered/Resolved]
  - Chest pain [Recovered/Resolved]

NARRATIVE: CASE EVENT DATE: 20150419
